FAERS Safety Report 6900440-2 (Version None)
Quarter: 2010Q3

REPORT INFORMATION
  Report Type: 
  Country: None (occurrence: None)
  Receive Date: 20100803
  Receipt Date: 20100722
  Transmission Date: 20110219
  Serious: Yes (Other)
  Sender: FDA-Public Use
  Company Number: CA-PFIZER INC-2010066003

PATIENT
  Age: 45 Year
  Sex: Female
  Weight: 54.4 kg

DRUGS (4)
  1. DILANTIN [Suspect]
     Indication: CONVULSION PROPHYLAXIS
     Dosage: UNK
     Dates: start: 20000701, end: 20000701
  2. DILANTIN [Suspect]
     Indication: PROPHYLAXIS
  3. CANNABIS [Concomitant]
     Indication: CONVULSION PROPHYLAXIS
     Dosage: UNK
  4. SYNTHROID [Concomitant]
     Indication: HYPOTHYROIDISM
     Dosage: 0.075 (UNITS UNKNOWN), 1X/DAY
     Dates: start: 19940101

REACTIONS (10)
  - ABNORMAL BEHAVIOUR [None]
  - BALANCE DISORDER [None]
  - BRAIN INJURY [None]
  - CONFUSIONAL STATE [None]
  - COORDINATION ABNORMAL [None]
  - DIZZINESS [None]
  - DRUG LEVEL ABOVE THERAPEUTIC [None]
  - DYSARTHRIA [None]
  - LIVER INJURY [None]
  - RASH GENERALISED [None]
